FAERS Safety Report 12195527 (Version 1)
Quarter: 2016Q1

REPORT INFORMATION
  Report Type: Spontaneous
  Country: US (occurrence: US)
  Receive Date: 20160321
  Receipt Date: 20160321
  Transmission Date: 20160526
  Serious: Yes (Other)
  Sender: FDA-Public Use
  Company Number: US-LPDUSPRD-20160220

PATIENT
  Age: 65 Year
  Sex: Female

DRUGS (2)
  1. VITAMIN B12 [Suspect]
     Active Substance: CYANOCOBALAMIN
     Dosage: DOSE UNKNOWN
     Route: 051
  2. CYANOCOBALAMIN INJECTION, USP (0031-25) [Suspect]
     Active Substance: CYANOCOBALAMIN
     Dosage: 1 ML Q4 DAYS
     Route: 051

REACTIONS (7)
  - Drooling [Not Recovered/Not Resolved]
  - Amino acid level abnormal [Unknown]
  - Drug ineffective [Not Recovered/Not Resolved]
  - Restless legs syndrome [Not Recovered/Not Resolved]
  - Paraesthesia [Not Recovered/Not Resolved]
  - Amnesia [Unknown]
  - Vitamin B12 deficiency [Unknown]
